FAERS Safety Report 8850821 (Version 1)
Quarter: 2012Q4

REPORT INFORMATION
  Report Type: 
  Country: US (occurrence: US)
  Receive Date: 20121019
  Receipt Date: 20121019
  Transmission Date: 20130627
  Serious: No
  Sender: FDA-Public Use
  Company Number: US-PFIZER INC-2012258281

PATIENT
  Sex: Female

DRUGS (1)
  1. ARTHROTEC [Suspect]
     Indication: ARTHRITIS
     Dosage: 0.2/75 mg, 2x/day
     Route: 048
     Dates: start: 2005, end: 2005

REACTIONS (1)
  - Skin discolouration [Unknown]
